FAERS Safety Report 20517164 (Version 1)
Quarter: 2022Q1

REPORT INFORMATION
  Report Type: Spontaneous
  Country: US (occurrence: US)
  Receive Date: 20220225
  Receipt Date: 20220225
  Transmission Date: 20220423
  Serious: Yes (Death, Other)
  Sender: FDA-Public Use
  Company Number: US-SAGENT PHARMACEUTICALS-2022SAG000338

PATIENT

DRUGS (5)
  1. MELPHALAN HYDROCHLORIDE [Suspect]
     Active Substance: MELPHALAN HYDROCHLORIDE
     Indication: Hodgkin^s disease
     Dosage: 140 MG/M2, ONCE, DAY -1
  2. CARMUSTINE [Suspect]
     Active Substance: CARMUSTINE
     Indication: Hodgkin^s disease
     Dosage: 300 MG/M2, ONCE, DAY -6
  3. CYTARABINE [Suspect]
     Active Substance: CYTARABINE
     Indication: Hodgkin^s disease
     Dosage: 200 MG/M2, BID, DAY -5 TO -2
  4. ETOPOSIDE [Suspect]
     Active Substance: ETOPOSIDE
     Indication: Hodgkin^s disease
     Dosage: 200 MG/M2, BID, DAY -5 TO -2
  5. RITUXIMAB [Suspect]
     Active Substance: RITUXIMAB
     Indication: Hodgkin^s disease
     Dosage: 375 MG/M2, DAY -6, +14, +21 AND +28

REACTIONS (2)
  - Pseudomonas infection [Fatal]
  - Neutropenia [Unknown]
